FAERS Safety Report 9762787 (Version 1)
Quarter: 2013Q4

REPORT INFORMATION
  Report Type: Spontaneous
  Country: FR (occurrence: FR)
  Receive Date: 20131216
  Receipt Date: 20131216
  Transmission Date: 20140711
  Serious: Yes (Hospitalization)
  Sender: FDA-Public Use
  Company Number: FR-MYLANLABS-2013S1027687

PATIENT
  Age: 35 Year
  Sex: Female
  Weight: 57 kg

DRUGS (1)
  1. NAPROXEN [Suspect]
     Indication: PAIN PROPHYLAXIS
     Dosage: 550MG 1H BEFORE RACE; REPEATED AFTER HALFWAY POINT
     Route: 065

REACTIONS (2)
  - Renal failure acute [Recovering/Resolving]
  - Self-medication [Recovering/Resolving]
